FAERS Safety Report 6297627-1 (Version None)
Quarter: 2009Q3

REPORT INFORMATION
  Report Type: 
  Country: None (occurrence: None)
  Receive Date: 20090805
  Receipt Date: 20090730
  Transmission Date: 20100115
  Serious: Yes (Hospitalization, Other)
  Sender: FDA-Public Use
  Company Number: US-BRISTOL-MYERS SQUIBB COMPANY-13959457

PATIENT
  Age: 61 Year
  Sex: Female
  Weight: 106 kg

DRUGS (5)
  1. SINEMET [Suspect]
     Indication: DYSTONIA
     Dosage: 1 D.F=2 + 1/2 TAB SINEMET EXTENDED RELEASE TAB 25/100 MG + DISCONTINUED RESTARTED REGULAR SINEMET
     Route: 048
     Dates: start: 19920101
  2. DORYX [Suspect]
     Indication: CELLULITIS
     Dosage: DOUBLE DOSE
     Dates: start: 20081201
  3. ALLEGRA [Concomitant]
     Route: 048
  4. VALIUM [Concomitant]
     Route: 048
  5. ESTRATEST H.S. [Concomitant]
     Dosage: TAKEN FOR YEARS
     Route: 048

REACTIONS (6)
  - ALTERED STATE OF CONSCIOUSNESS [None]
  - CARDIAC FAILURE [None]
  - FACIAL PALSY [None]
  - FALL [None]
  - OXYGEN SATURATION DECREASED [None]
  - RESPIRATORY FAILURE [None]
